FAERS Safety Report 11501238 (Version 1)
Quarter: 2015Q3

REPORT INFORMATION
  Report Type: Spontaneous
  Country: US (occurrence: US)
  Receive Date: 20150903
  Receipt Date: 20150903
  Transmission Date: 20151125
  Serious: No
  Sender: FDA-Public Use
  Company Number: US-ELI_LILLY_AND_COMPANY-US200908000689

PATIENT
  Age: 32 Year
  Sex: Female

DRUGS (2)
  1. HUMALOG [Suspect]
     Active Substance: INSULIN LISPRO
     Dosage: UNK, UNKNOWN
     Dates: start: 1999
  2. HUMALOG [Suspect]
     Active Substance: INSULIN LISPRO
     Dosage: UNK, UNK
     Route: 058
     Dates: start: 2004

REACTIONS (8)
  - Cold sweat [Not Recovered/Not Resolved]
  - Blood glucose increased [Recovered/Resolved]
  - Hypoglycaemia [Not Recovered/Not Resolved]
  - Drug ineffective [Recovered/Resolved]
  - Blood glucose decreased [Not Recovered/Not Resolved]
  - Thinking abnormal [Not Recovered/Not Resolved]
  - Speech disorder [Not Recovered/Not Resolved]
  - Dizziness [Not Recovered/Not Resolved]

NARRATIVE: CASE EVENT DATE: 2004
